FAERS Safety Report 10700245 (Version 1)
Quarter: 2015Q1

REPORT INFORMATION
  Report Type: Spontaneous
  Country: US (occurrence: US)
  Receive Date: 20150109
  Receipt Date: 20150109
  Transmission Date: 20150721
  Serious: No
  Sender: FDA-Public Use
  Company Number: US-PFIZER INC-2015007966

PATIENT
  Sex: Male

DRUGS (3)
  1. LYRICA [Suspect]
     Active Substance: PREGABALIN
     Dosage: 150 MG, 2X/DAY (MORNING AND NIGHT)
  2. LYRICA [Suspect]
     Active Substance: PREGABALIN
     Dosage: 100 MG, 2X/DAY(100MG IN THE MORNING AND 100MG IN THE NIGHT)
  3. LYRICA [Suspect]
     Active Substance: PREGABALIN
     Dosage: 200 MG, 1X/DAY (BOTH THE 100MG AT NIGHT)

REACTIONS (4)
  - Diarrhoea [Unknown]
  - Amnesia [Unknown]
  - Skin disorder [Unknown]
  - Faeces discoloured [Unknown]
